FAERS Safety Report 7402696-9 (Version None)
Quarter: 2011Q1

REPORT INFORMATION
  Report Type: 
  Country: None (occurrence: None)
  Receive Date: 20110329
  Receipt Date: 20110311
  Transmission Date: 20110831
  Serious: Yes (Death)
  Sender: FDA-Public Use
  Company Number: JPI-P-014191

PATIENT
  Age: 81 Year
  Sex: Female

DRUGS (1)
  1. XYREM [Suspect]
     Indication: NARCOLEPSY
     Dosage: (1.5 GM FIRST DOSE/1 GM SECOND DOSE),ORAL
     Route: 048
     Dates: start: 20110221, end: 20110310

REACTIONS (1)
  - DEATH [None]
